FAERS Safety Report 13512353 (Version 2)
Quarter: 2017Q2

REPORT INFORMATION
  Report Type: Spontaneous
  Country: US (occurrence: US)
  Receive Date: 20170504
  Receipt Date: 20170509
  Transmission Date: 20170830
  Serious: No
  Sender: FDA-Public Use
  Company Number: US-ASTRAZENECA-2017SE46052

PATIENT
  Sex: Female
  Weight: 40.8 kg

DRUGS (1)
  1. TUDORZA PRESSAIR [Suspect]
     Active Substance: ACLIDINIUM BROMIDE
     Indication: ASTHMA
     Dosage: 400MCG 1 PUFF EVERY 12 HOURS
     Route: 055
     Dates: start: 20170407

REACTIONS (3)
  - Drug dose omission [Unknown]
  - Device defective [Unknown]
  - Intentional device misuse [Unknown]
